FAERS Safety Report 14449847 (Version 1)
Quarter: 2018Q1

REPORT INFORMATION
  Report Type: Spontaneous
  Country: US (occurrence: US)
  Receive Date: 20180128
  Receipt Date: 20180128
  Transmission Date: 20180509
  Serious: Yes (Hospitalization, Other)
  Sender: FDA-Public Use
  Company Number: US-B.I. PHARMACEUTICALS,INC./RIDGEFIELD-2018-BI-003875

PATIENT
  Age: 78 Year
  Sex: Male

DRUGS (1)
  1. TRAJENTA [Suspect]
     Active Substance: LINAGLIPTIN
     Indication: DIABETES MELLITUS
     Route: 048
     Dates: start: 2017

REACTIONS (2)
  - Cerebrovascular accident [Not Recovered/Not Resolved]
  - Dysarthria [Not Recovered/Not Resolved]

NARRATIVE: CASE EVENT DATE: 201712
